FAERS Safety Report 11861930 (Version 1)
Quarter: 2015Q4

REPORT INFORMATION
  Report Type: Report from Study
  Country: US (occurrence: US)
  Receive Date: 20151222
  Receipt Date: 20151222
  Transmission Date: 20160305
  Serious: Yes (Hospitalization)
  Sender: FDA-Public Use
  Company Number: US-BIOGEN-2015BI147286

PATIENT
  Age: 15 Month
  Sex: Male
  Weight: 9.9 kg

DRUGS (3)
  1. POLY-VI-SOL WITH IRON [Concomitant]
     Indication: ROUTINE HEALTH MAINTENANCE
     Route: 048
     Dates: start: 20150528
  2. RFIXFC [Suspect]
     Active Substance: EFTRENONACOG ALFA
     Indication: HAEMOPHILIA
     Route: 042
     Dates: start: 20150602
  3. RFIXFC [Suspect]
     Active Substance: EFTRENONACOG ALFA
     Dates: start: 20151101, end: 20151101

REACTIONS (1)
  - Viral infection [Recovered/Resolved]

NARRATIVE: CASE EVENT DATE: 20151102
